FAERS Safety Report 13747379 (Version 1)
Quarter: 2017Q3

REPORT INFORMATION
  Report Type: Spontaneous
  Country: US (occurrence: US)
  Receive Date: 20170712
  Receipt Date: 20170712
  Transmission Date: 20171127
  Serious: No
  Sender: FDA-Public Use
  Company Number: US-VIRTUS PHARMACEUTICALS, LLC-2017VTS00017

PATIENT
  Age: 52 Year
  Sex: Female
  Weight: 102.4 kg

DRUGS (7)
  1. ZINC. [Concomitant]
     Active Substance: ZINC
     Dosage: UNK, 1X/DAY
  2. MULTI-B [Concomitant]
     Dosage: UNK, 1X/DAY
  3. VITAMIN D2 [Concomitant]
     Active Substance: ERGOCALCIFEROL
     Dosage: UNK, 1X/DAY
  4. ^THYROXINE^ [Concomitant]
     Dosage: UNK, 1X/DAY
  5. VITAMIN C [Concomitant]
     Active Substance: ASCORBIC ACID
     Dosage: UNK, 1X/DAY
  6. PROMETRIUM [Suspect]
     Active Substance: PROGESTERONE
     Indication: OOPHORECTOMY
     Dosage: 100 MG, 1X/DAY
     Route: 048
     Dates: end: 2016
  7. MAGNESIUM [Concomitant]
     Active Substance: MAGNESIUM
     Dosage: 500 MG, 1X/DAY

REACTIONS (3)
  - Metrorrhagia [Recovered/Resolved]
  - Drug ineffective [Not Recovered/Not Resolved]
  - Insomnia [Recovered/Resolved]

NARRATIVE: CASE EVENT DATE: 201701
